FAERS Safety Report 5887948-6 (Version None)
Quarter: 2008Q3

REPORT INFORMATION
  Report Type: 
  Country: None (occurrence: None)
  Receive Date: 20080918
  Receipt Date: 20080912
  Transmission Date: 20090109
  Serious: Yes (Death, Life-Threatening)
  Sender: FDA-Public Use
  Company Number: B0087072A

PATIENT
  Age: 30 Year
  Sex: Male
  Weight: 52.5 kg

DRUGS (20)
  1. FLOLAN [Suspect]
     Route: 065
     Dates: start: 19980223
  2. DIGOXIN [Concomitant]
     Route: 048
  3. FUROSEMIDE [Concomitant]
     Route: 048
  4. SPIRONOLACTONE [Concomitant]
     Route: 048
  5. WARFARIN SODIUM [Concomitant]
     Route: 048
  6. LASIX [Concomitant]
     Indication: PULMONARY ARTERIAL HYPERTENSION
     Dates: start: 19950101, end: 20000819
  7. ALDACTONE [Concomitant]
     Indication: PULMONARY ARTERIAL HYPERTENSION
     Dates: start: 19950101, end: 20000819
  8. DIGOSIN [Concomitant]
     Indication: PULMONARY ARTERIAL HYPERTENSION
     Dates: start: 19980223, end: 20000819
  9. FLUITRAN [Concomitant]
     Indication: PULMONARY ARTERIAL HYPERTENSION
     Dates: start: 19990201, end: 20000819
  10. UNKNOWN [Concomitant]
     Indication: PULMONARY ARTERIAL HYPERTENSION
  11. ASPARA K [Concomitant]
     Route: 048
  12. HALCION [Concomitant]
     Route: 048
  13. FAMOTIDINE [Concomitant]
     Route: 048
  14. CODEINE SULPHATE [Concomitant]
  15. MERCAZOLE [Concomitant]
     Route: 048
  16. ENSURE [Concomitant]
     Route: 048
  17. SULPERAZON [Concomitant]
     Route: 042
  18. DOBUTREX [Concomitant]
     Route: 042
  19. BIOFERMIN R [Concomitant]
     Route: 048
  20. TRIPAREN [Concomitant]
     Route: 042

REACTIONS (9)
  - AGRANULOCYTOSIS [None]
  - BLOOD PRESSURE DECREASED [None]
  - CARDIO-RESPIRATORY ARREST [None]
  - CHILLS [None]
  - HAEMOPTYSIS [None]
  - HYPERTHYROIDISM [None]
  - PYREXIA [None]
  - RIGHT VENTRICULAR FAILURE [None]
  - SEPSIS [None]
